FAERS Safety Report 21332652 (Version 2)
Quarter: 2022Q3

REPORT INFORMATION
  Report Type: Spontaneous
  Country: US (occurrence: US)
  Receive Date: 20220914
  Receipt Date: 20220915
  Transmission Date: 20221027
  Serious: Yes (Death)
  Sender: FDA-Public Use
  Company Number: US-PFIZER INC-PV202200062932

PATIENT
  Age: 75 Year
  Sex: Female

DRUGS (1)
  1. IBRANCE [Suspect]
     Active Substance: PALBOCICLIB
     Indication: Retroperitoneal cancer
     Dosage: 125 MG

REACTIONS (2)
  - Death [Fatal]
  - Off label use [Unknown]
